FAERS Safety Report 8996996 (Version 1)
Quarter: 2013Q1

REPORT INFORMATION
  Report Type: Spontaneous
  Country: US (occurrence: None)
  Receive Date: 20130102
  Receipt Date: 20130102
  Transmission Date: 20140127
  Serious: Yes (Hospitalization)
  Sender: FDA-Public Use
  Company Number: None

PATIENT
  Sex: Female
  Weight: 63.5 kg

DRUGS (2)
  1. GEMCITABINE [Suspect]
     Indication: BLADDER CANCER
     Route: 042
     Dates: start: 20121217
  2. CISPLATIN [Suspect]
     Dosage: TWICE
     Route: 042
     Dates: start: 20121217, end: 20121218

REACTIONS (3)
  - Pyrexia [None]
  - Nausea [None]
  - Vomiting [None]
